FAERS Safety Report 8247166-3 (Version None)
Quarter: 2012Q1

REPORT INFORMATION
  Report Type: 
  Country: None (occurrence: None)
  Receive Date: 20120329
  Receipt Date: 20120329
  Transmission Date: 20120608
  Serious: Yes (Hospitalization)
  Sender: FDA-Public Use
  Company Number: None

PATIENT
  Sex: Female
  Weight: 86.1834 kg

DRUGS (2)
  1. NITROFURANTOIN [Suspect]
     Indication: URINE ANALYSIS ABNORMAL
     Dosage: 100MG 2 A DAY
     Dates: start: 20120222, end: 20120305
  2. NITROFURANTOIN [Suspect]
     Indication: ESCHERICHIA TEST POSITIVE
     Dosage: 100MG 2 A DAY
     Dates: start: 20120222, end: 20120305

REACTIONS (3)
  - VOMITING [None]
  - DIARRHOEA [None]
  - DEHYDRATION [None]
